FAERS Safety Report 7135370-7 (Version None)
Quarter: 2010Q4

REPORT INFORMATION
  Report Type: 
  Country: None (occurrence: None)
  Receive Date: 20101203
  Receipt Date: 20101130
  Transmission Date: 20110411
  Serious: Yes (Other)
  Sender: FDA-Public Use
  Company Number: JP-PFIZER INC-2010137634

PATIENT
  Age: 80 Year
  Sex: Female

DRUGS (2)
  1. SULPERAZON [Suspect]
     Indication: ENTEROCOLITIS BACTERIAL
     Dosage: 2 G
     Route: 041
     Dates: start: 20101013, end: 20101025
  2. ADONA [Concomitant]

REACTIONS (2)
  - LIVER DISORDER [None]
  - PANCYTOPENIA [None]
